FAERS Safety Report 7415411-X (Version None)
Quarter: 2011Q2

REPORT INFORMATION
  Report Type: 
  Country: None (occurrence: None)
  Receive Date: 20110414
  Receipt Date: 20110407
  Transmission Date: 20111010
  Serious: Yes (Other)
  Sender: FDA-Public Use
  Company Number: B0712938A

PATIENT
  Sex: Female

DRUGS (4)
  1. PERSANTIN [Concomitant]
  2. ALBYL-E [Concomitant]
  3. SIMVASTATIN [Concomitant]
  4. LAMICTAL [Suspect]
     Indication: EPILEPSY
     Dosage: 125MG TWICE PER DAY
     Route: 065
     Dates: start: 20060601

REACTIONS (2)
  - RASH [None]
  - CUTANEOUS LUPUS ERYTHEMATOSUS [None]
